FAERS Safety Report 21057743 (Version 1)
Quarter: 2022Q3

REPORT INFORMATION
  Report Type: Spontaneous
  Country: US (occurrence: US)
  Receive Date: 20220708
  Receipt Date: 20220708
  Transmission Date: 20221026
  Serious: No
  Sender: FDA-Public Use
  Company Number: US-009507513-2206USA002613

PATIENT
  Age: 58 Year
  Sex: Male

DRUGS (7)
  1. NOXAFIL [Suspect]
     Active Substance: POSACONAZOLE
     Indication: Pythium insidiosum infection
     Dosage: 600 MILLIGRAM, LOADING DOSE
     Route: 048
  2. NOXAFIL [Suspect]
     Active Substance: POSACONAZOLE
     Dosage: 300 MILLIGRAM, DAILY
     Route: 048
  3. CANCIDAS [Suspect]
     Active Substance: CASPOFUNGIN ACETATE
     Indication: Pythium insidiosum infection
     Dosage: 50 MILLIGRAM, DAILY
  4. AMPHOTERICIN B [Concomitant]
     Active Substance: AMPHOTERICIN B
     Indication: Pythium insidiosum infection
     Dosage: 5 MILLIGRAM/KILOGRAM, QD
     Route: 042
  5. MINOCYCLINE [Concomitant]
     Active Substance: MINOCYCLINE HYDROCHLORIDE
     Indication: Pythium insidiosum infection
     Dosage: 100 MG BY MOUTH TWICE DAILY
     Route: 048
  6. TERBINAFINE [Concomitant]
     Active Substance: TERBINAFINE
     Indication: Pythium insidiosum infection
     Dosage: 250 MILLIGRAM, DAILY
     Route: 048
  7. ITRACONAZOLE [Concomitant]
     Active Substance: ITRACONAZOLE
     Indication: Pythium insidiosum infection
     Dosage: 200 MG BY MOUTH TWICE-DAILY
     Route: 048

REACTIONS (1)
  - Product use in unapproved indication [Unknown]
